FAERS Safety Report 18512605 (Version 1)
Quarter: 2020Q4

REPORT INFORMATION
  Report Type: Report from Study
  Country: US (occurrence: US)
  Receive Date: 20201117
  Receipt Date: 20201117
  Transmission Date: 20210114
  Serious: No
  Sender: FDA-Public Use
  Company Number: US-IPSEN BIOPHARMACEUTICALS, INC.-2019-09180

PATIENT
  Age: 9 Year
  Sex: Female

DRUGS (5)
  1. DYSPORT [Suspect]
     Active Substance: ABOBOTULINUMTOXINA
     Indication: MUSCLE SPASTICITY
     Dosage: 100 UNITS (HAMSTRING)
     Route: 030
     Dates: start: 20190521, end: 20190521
  2. DYSPORT [Suspect]
     Active Substance: ABOBOTULINUMTOXINA
     Indication: OFF LABEL USE
  3. DIASTAT [Concomitant]
     Active Substance: DIAZEPAM
     Indication: SEIZURE
     Route: 054
     Dates: start: 2017
  4. PROAIR HFA [Concomitant]
     Active Substance: ALBUTEROL SULFATE
     Indication: ASTHMA
     Dosage: 2 PUFFS (INHALATION)
     Route: 045
     Dates: start: 2011
  5. TEGRETOL XR [Concomitant]
     Active Substance: CARBAMAZEPINE
     Indication: SEIZURE
     Dates: start: 2017

REACTIONS (1)
  - Off label use [Unknown]

NARRATIVE: CASE EVENT DATE: 20190521
